FAERS Safety Report 18905940 (Version 2)
Quarter: 2021Q1

REPORT INFORMATION
  Report Type: Report from Study
  Country: US (occurrence: US)
  Receive Date: 20210217
  Receipt Date: 20210324
  Transmission Date: 20210420
  Serious: Yes (Other)
  Sender: FDA-Public Use
  Company Number: US-SEATTLE GENETICS-2020SGN04685

PATIENT
  Sex: Female

DRUGS (2)
  1. XELODA [Concomitant]
     Active Substance: CAPECITABINE
  2. TUCATINIB [Suspect]
     Active Substance: TUCATINIB
     Indication: BREAST CANCER FEMALE
     Route: 048

REACTIONS (14)
  - Anal incontinence [Unknown]
  - Urinary incontinence [Unknown]
  - Diarrhoea [Unknown]
  - Product dose omission issue [Unknown]
  - Tremor [Unknown]
  - Thrombosis [Unknown]
  - Hypoaesthesia [Unknown]
  - Cough [Unknown]
  - Fatigue [Unknown]
  - Brain operation [Unknown]
  - Rhinorrhoea [Unknown]
  - Sneezing [Unknown]
  - Erythema [Unknown]
  - Paraesthesia [Unknown]
